FAERS Safety Report 4999260-8 (Version None)
Quarter: 2006Q2

REPORT INFORMATION
  Report Type: 
  Country: None (occurrence: None)
  Receive Date: 20060509
  Receipt Date: 20060501
  Transmission Date: 20061013
  Serious: Yes (Hospitalization)
  Sender: FDA-Public Use
  Company Number: 2006058350

PATIENT
  Sex: Male

DRUGS (1)
  1. BENADRYL [Suspect]
     Indication: RASH PRURITIC
     Dosage: 2 TABS EVERY 4 HRS OR LESS OFTEN, ORAL
     Route: 048
     Dates: end: 20060401

REACTIONS (3)
  - CELLULITIS [None]
  - ECZEMA [None]
  - HALLUCINATION [None]
